FAERS Safety Report 21668417 (Version 1)
Quarter: 2022Q4

REPORT INFORMATION
  Report Type: Spontaneous
  Country: FR (occurrence: FR)
  Receive Date: 20221201
  Receipt Date: 20221201
  Transmission Date: 20230112
  Serious: Yes (Hospitalization, Other)
  Sender: FDA-Public Use
  Company Number: FR-TAKEDA-2022TUS092088

PATIENT
  Age: 70 Year
  Sex: Male
  Weight: 90 kg

DRUGS (5)
  1. FEBUXOSTAT [Suspect]
     Active Substance: FEBUXOSTAT
     Indication: Chemotherapy side effect prophylaxis
     Dosage: 80 MILLIGRAM, QD
     Route: 048
     Dates: start: 202210, end: 20221017
  2. BENDAMUSTINE [Suspect]
     Active Substance: BENDAMUSTINE
     Indication: Marginal zone lymphoma
     Dosage: 139.5 MILLIGRAM, QD
     Route: 042
     Dates: start: 20221003, end: 20221003
  3. BACTRIM [Suspect]
     Active Substance: SULFAMETHOXAZOLE\TRIMETHOPRIM
     Indication: Opportunistic infection prophylaxis
     Dosage: UNK
     Route: 048
     Dates: start: 20221017, end: 20221021
  4. HYDROCHLOROTHIAZIDE\IRBESARTAN [Suspect]
     Active Substance: HYDROCHLOROTHIAZIDE\IRBESARTAN
     Indication: Hypertension
     Dosage: UNK
     Route: 048
     Dates: end: 20221021
  5. VALACYCLOVIR HYDROCHLORIDE [Suspect]
     Active Substance: VALACYCLOVIR HYDROCHLORIDE
     Indication: Opportunistic infection prophylaxis
     Dosage: UNK
     Route: 048
     Dates: start: 20221017, end: 20221021

REACTIONS (3)
  - Acute kidney injury [Recovered/Resolved]
  - Off label use [Recovered/Resolved]
  - Rash [Recovered/Resolved]

NARRATIVE: CASE EVENT DATE: 20221001
